FAERS Safety Report 22315750 (Version 1)
Quarter: 2023Q2

REPORT INFORMATION
  Report Type: Report from Study
  Country: US (occurrence: US)
  Receive Date: 20230512
  Receipt Date: 20230512
  Transmission Date: 20230721
  Serious: Yes (Hospitalization)
  Sender: FDA-Public Use
  Company Number: US-MYLANLABS-2023M1041242

PATIENT
  Age: 44 Year
  Sex: Male
  Weight: 93 kg

DRUGS (11)
  1. XANAX [Suspect]
     Active Substance: ALPRAZOLAM
     Indication: Relaxation therapy
     Dosage: UNK
     Route: 065
  2. POTASSIUM CHLORIDE [Suspect]
     Active Substance: POTASSIUM CHLORIDE
     Dosage: UNK
     Route: 065
  3. MEDROL [Suspect]
     Active Substance: METHYLPREDNISOLONE
     Indication: Pharyngeal erythema
     Dosage: UNK
     Route: 065
  4. MEDROL [Suspect]
     Active Substance: METHYLPREDNISOLONE
     Indication: Throat irritation
  5. KEVEYIS [Suspect]
     Active Substance: DICHLORPHENAMIDE
     Indication: Paralysis
     Dosage: 50 MILLIGRAM, ONE TABLET (50 (CONTINUED)
     Route: 048
     Dates: start: 20230112, end: 2023
  6. KEVEYIS [Suspect]
     Active Substance: DICHLORPHENAMIDE
     Dosage: 2 DOSAGE FORM, QD, 2 TABLETS (100 MG), 1X/DAY
     Route: 048
     Dates: start: 2023
  7. KEVEYIS [Suspect]
     Active Substance: DICHLORPHENAMIDE
     Dosage: 1 DOSAGE FORM, QD, 1 TABLET (50 MG), 1X/DAY
     Route: 048
     Dates: start: 20230403
  8. VITAMIN B [Concomitant]
     Active Substance: VITAMIN B
     Dosage: UNK
     Route: 065
  9. OMEPRAZOLE [Concomitant]
     Active Substance: OMEPRAZOLE
     Dosage: UNK
     Route: 065
  10. SPIRONOLACTONE [Concomitant]
     Active Substance: SPIRONOLACTONE
     Dosage: 50 MILLIGRAM, QD
     Route: 065
  11. MAGNESIUM CITRATE [Concomitant]
     Active Substance: MAGNESIUM CITRATE
     Dosage: 400 MILLIGRAM, QD, EVERY OTHER DAY
     Route: 065

REACTIONS (26)
  - Throat tightness [Unknown]
  - Blood pressure increased [Unknown]
  - White blood cell count increased [Unknown]
  - Dysphagia [Unknown]
  - Dyspnoea [Unknown]
  - Feeling abnormal [Recovered/Resolved]
  - Pharyngeal erythema [Recovering/Resolving]
  - Throat irritation [Not Recovered/Not Resolved]
  - Hyperhidrosis [Unknown]
  - Diaphragmatic disorder [Unknown]
  - Laryngeal disorder [Unknown]
  - Muscle tightness [Not Recovered/Not Resolved]
  - Movement disorder [Not Recovered/Not Resolved]
  - Dysphonia [Not Recovered/Not Resolved]
  - Sensation of foreign body [Not Recovered/Not Resolved]
  - Blood potassium increased [Not Recovered/Not Resolved]
  - Paraesthesia [Not Recovered/Not Resolved]
  - Taste disorder [Unknown]
  - Paralysis [Unknown]
  - Anxiety [Unknown]
  - Decreased appetite [Unknown]
  - Nervousness [Unknown]
  - Confusional state [Recovering/Resolving]
  - Dizziness [Recovered/Resolved]
  - Oropharyngeal pain [Unknown]
  - Vertigo [Unknown]

NARRATIVE: CASE EVENT DATE: 20230114
